FAERS Safety Report 8992692 (Version 1)
Quarter: 2013Q1

REPORT INFORMATION
  Report Type: Spontaneous
  Country: GR (occurrence: GR)
  Receive Date: 20130101
  Receipt Date: 20130101
  Transmission Date: 20140127
  Serious: Yes (Other)
  Sender: FDA-Public Use
  Company Number: GR-ROCHE-1172583

PATIENT
  Age: 78 Year
  Sex: Female
  Weight: 65 kg

DRUGS (4)
  1. BONVIVA [Suspect]
     Indication: OSTEOPOROSIS
     Route: 048
     Dates: start: 2010
  2. PROPAFENONE HYDROCHLORIDE [Suspect]
     Indication: ARRHYTHMIA
     Route: 048
     Dates: start: 201202, end: 20120311
  3. LIPITOR [Interacting]
     Indication: DYSLIPIDAEMIA
     Route: 048
     Dates: start: 2008, end: 20120311
  4. CARVEPEN [Interacting]
     Indication: CORONARY ARTERY DISEASE
     Route: 048
     Dates: start: 2010

REACTIONS (1)
  - Cholestasis [Recovering/Resolving]
